FAERS Safety Report 6593362-0 (Version None)
Quarter: 2010Q1

REPORT INFORMATION
  Report Type: 
  Country: None (occurrence: None)
  Receive Date: 20100222
  Receipt Date: 20090226
  Transmission Date: 20100710
  Serious: No
  Sender: FDA-Public Use
  Company Number: US-BRISTOL-MYERS SQUIBB COMPANY-14522239

PATIENT
  Age: 42 Year
  Sex: Female
  Weight: 61 kg

DRUGS (5)
  1. ORENCIA [Suspect]
     Indication: RHEUMATOID ARTHRITIS
     Dates: start: 20081201
  2. SULFASALAZINE [Concomitant]
  3. PREDNISONE [Concomitant]
  4. ADVIL [Concomitant]
  5. CENESTIN [Concomitant]

REACTIONS (1)
  - HEADACHE [None]
